FAERS Safety Report 25133892 (Version 1)
Quarter: 2025Q1

REPORT INFORMATION
  Report Type: Spontaneous
  Country: US (occurrence: US)
  Receive Date: 20250328
  Receipt Date: 20250328
  Transmission Date: 20250408
  Serious: Yes (Death, Life-Threatening, Hospitalization)
  Sender: Unknown Manufacturer
  Company Number: US-MLMSERVICE-20250312-PI441183-00217-3

PATIENT
  Age: 21 Year
  Sex: Female

DRUGS (1)
  1. METFORMIN [Suspect]
     Active Substance: METFORMIN HYDROCHLORIDE
     Indication: Product used for unknown indication
     Route: 048

REACTIONS (9)
  - Cardiac arrest [Fatal]
  - Pulseless electrical activity [Fatal]
  - Electrocardiogram QT prolonged [Unknown]
  - Distributive shock [Unknown]
  - Hypothermia [Unknown]
  - Hypoglycaemia [Unknown]
  - Acidosis [Unknown]
  - Blood lactic acid increased [Unknown]
  - Intentional overdose [Unknown]
